FAERS Safety Report 25919021 (Version 2)
Quarter: 2025Q4

REPORT INFORMATION
  Report Type: Spontaneous
  Country: JP (occurrence: JP)
  Receive Date: 20251014
  Receipt Date: 20251105
  Transmission Date: 20260118
  Serious: No
  Sender: JOHNSON AND JOHNSON
  Company Number: JP-JNJFOC-20251011179

PATIENT
  Age: 48 Year
  Sex: Male

DRUGS (4)
  1. BALVERSA [Suspect]
     Active Substance: ERDAFITINIB
     Indication: Gastric cancer
     Route: 065
  2. PEMIGATINIB [Suspect]
     Active Substance: PEMIGATINIB
     Indication: Gastric cancer
     Route: 065
  3. FUTIBATINIB [Suspect]
     Active Substance: FUTIBATINIB
     Indication: Gastric cancer
     Route: 065
  4. IRINOTECAN [Concomitant]
     Active Substance: IRINOTECAN
     Indication: Product used for unknown indication

REACTIONS (2)
  - Drug effective for unapproved indication [Unknown]
  - Off label use [Unknown]
